FAERS Safety Report 8985192 (Version 1)
Quarter: 2012Q4

REPORT INFORMATION
  Report Type: 
  Country: FR (occurrence: FR)
  Receive Date: 20121224
  Receipt Date: 20121224
  Transmission Date: 20130627
  Serious: Yes (Hospitalization)
  Sender: FDA-Public Use
  Company Number: FR-009507513-1212FRA006685

PATIENT
  Age: 81 Year
  Sex: Male

DRUGS (7)
  1. ZOCOR [Suspect]
     Dosage: UNK
     Route: 048
     Dates: end: 20120818
  2. ADALATE [Suspect]
     Dosage: UNK
     Route: 048
     Dates: end: 20120818
  3. TRIATEC (RAMIPRIL) [Suspect]
     Dosage: UNK
     Route: 048
     Dates: end: 20120818
  4. PLAVIX [Suspect]
     Dosage: UNK
     Route: 048
     Dates: end: 20120818
  5. BISOPROLOL [Suspect]
     Dosage: UNK
     Route: 048
     Dates: end: 20120818
  6. ALLOPURINOL [Suspect]
     Dosage: UNK
     Route: 048
  7. BIPERIDYS [Suspect]
     Dosage: UNK
     Route: 048
     Dates: end: 20120818

REACTIONS (1)
  - Hyponatraemia [Recovered/Resolved]
